FAERS Safety Report 8240296-1 (Version None)
Quarter: 2012Q1

REPORT INFORMATION
  Report Type: 
  Country: None (occurrence: None)
  Receive Date: 20120328
  Receipt Date: 20120328
  Transmission Date: 20120608
  Serious: Yes (Life-Threatening, Hospitalization)
  Sender: FDA-Public Use
  Company Number: None

PATIENT
  Age: 71 Year
  Sex: Female
  Weight: 663.15 kg

DRUGS (1)
  1. AXITINIB [Suspect]
     Indication: RENAL CELL CARCINOMA
     Dosage: 5 MG
     Route: 048
     Dates: start: 20120306, end: 20120307

REACTIONS (8)
  - CHEST PAIN [None]
  - STRESS CARDIOMYOPATHY [None]
  - DYSPNOEA [None]
  - OXYGEN SATURATION DECREASED [None]
  - VENTRICULAR HYPERTROPHY [None]
  - TROPONIN I INCREASED [None]
  - TACHYCARDIA [None]
  - ELECTROCARDIOGRAM ST SEGMENT ELEVATION [None]
